FAERS Safety Report 9515385 (Version 1)
Quarter: 2013Q1

REPORT INFORMATION
  Report Type: Spontaneous
  Country: US (occurrence: None)
  Receive Date: 20130305
  Receipt Date: 20130305
  Transmission Date: 20140127
  Serious: Yes (Hospitalization)
  Sender: FDA-Public Use
  Company Number: 163-21880-12102827

PATIENT
  Age: 82 Year
  Sex: Male
  Weight: 73.93 kg

DRUGS (17)
  1. REVLIMID [Suspect]
     Indication: MYELODYSPLASTIC SYNDROME
     Dosage: 5 MG, 21 IN 28 D, PO
     Route: 048
     Dates: start: 20121004, end: 20121018
  2. XANAX (ALPRAZOLAM) [Concomitant]
  3. LISINOPRIL (LISINOPRIL) [Concomitant]
  4. TOPROL XL (METOPROLOL SUCCINATE) (100 MILLIGRAM) (METOPROLOL SUCCINATE) [Concomitant]
  5. ZOVIRAX (ACICLOVIR) [Concomitant]
  6. LIPITOR (ATORVASTATIN) [Concomitant]
  7. MULTAQ (DRONEDARONE HYDROCHLORIDE) [Concomitant]
  8. PRILOSEC [Concomitant]
  9. VITAMINS [Concomitant]
  10. VITAMIN D (ERGOCALCIFEROL) [Concomitant]
  11. ALBUTEROL (SALBUTAMOL) [Concomitant]
  12. ALBUTEROL-IPRATROPIUM (SALBUTAMOL W/IPRATROPIUM) [Concomitant]
  13. DARBEPOETIN (DARBEPOETIN ALFA) [Concomitant]
  14. HYDROCHLOROTHIAZIDE (HYDROCHLOROTHIAZIDE) [Concomitant]
  15. IPRATROPIUM BROMIDE (IPRATROPIUM BROMIDE) [Concomitant]
  16. OCUVITE (OCUVITE) [Concomitant]
  17. VISION-VITE PRESERVE (MULTIVITAMINS WITH MINERALS) [Concomitant]

REACTIONS (3)
  - Chronic obstructive pulmonary disease [None]
  - Hypoaesthesia [None]
  - Paraesthesia [None]
